FAERS Safety Report 6409481-5 (Version None)
Quarter: 2009Q4

REPORT INFORMATION
  Report Type: 
  Country: None (occurrence: None)
  Receive Date: 20091016
  Receipt Date: 20091012
  Transmission Date: 20100525
  Serious: Yes (Other)
  Sender: FDA-Public Use
  Company Number: 2009SP022793

PATIENT
  Age: 24 Year
  Sex: Female

DRUGS (3)
  1. PEG-INTRON [Suspect]
     Indication: HEPATITIS C
     Dosage: 150 MCG; QW; SC
     Route: 058
     Dates: start: 20090724, end: 20090814
  2. RIBAVIRIN [Suspect]
     Indication: HEPATITIS C
     Dosage: 600 MG; QAM; PO, 600 MG; QPM; PO
     Route: 048
  3. CELEXA [Concomitant]

REACTIONS (2)
  - DRUG HYPERSENSITIVITY [None]
  - PHARYNGEAL OEDEMA [None]
